FAERS Safety Report 18339101 (Version 1)
Quarter: 2020Q4

REPORT INFORMATION
  Report Type: Spontaneous
  Country: US (occurrence: US)
  Receive Date: 20201002
  Receipt Date: 20201002
  Transmission Date: 20210113
  Serious: No
  Sender: FDA-Public Use
  Company Number: US-PERRIGO-19US014590

PATIENT
  Sex: Male

DRUGS (2)
  1. NICOTINE POLACRILEX [Suspect]
     Active Substance: NICOTINE
     Indication: SMOKING CESSATION THERAPY
     Dosage: 4 MG, 20 TIMES DAILY
     Route: 002
     Dates: start: 20191106, end: 201911
  2. NICOTINE POLACRILEX [Suspect]
     Active Substance: NICOTINE
     Dosage: 2 MG, UNKNOWN
     Route: 002
     Dates: start: 201911, end: 20191120

REACTIONS (6)
  - Ocular hyperaemia [Unknown]
  - Palpitations [Unknown]
  - Erythema of eyelid [Unknown]
  - Headache [Unknown]
  - Eye irritation [Unknown]
  - Overdose [Recovered/Resolved]

NARRATIVE: CASE EVENT DATE: 201911
